FAERS Safety Report 12835027 (Version 1)
Quarter: 2016Q4

REPORT INFORMATION
  Report Type: Spontaneous
  Country: US (occurrence: US)
  Receive Date: 20161010
  Receipt Date: 20161010
  Transmission Date: 20170207
  Serious: No
  Sender: FDA-Public Use
  Company Number: US-ASTRAZENECA-2016SF02977

PATIENT

DRUGS (4)
  1. HEART MED [Concomitant]
     Indication: HEART RATE INCREASED
  2. SYMBICORT [Suspect]
     Active Substance: BUDESONIDE\FORMOTEROL FUMARATE DIHYDRATE
     Dosage: 2 PUFFS TWICE DAILY
     Route: 055
  3. PREDNISONE. [Concomitant]
     Active Substance: PREDNISONE
  4. BREATHING TREATMENTS WITH NEBULIZER [Concomitant]
     Indication: DYSPNOEA
     Dosage: 4 TIMES A DAY
     Route: 055

REACTIONS (2)
  - Malaise [Unknown]
  - Heart rate increased [Unknown]
